FAERS Safety Report 4676674-7 (Version None)
Quarter: 2005Q2

REPORT INFORMATION
  Report Type: 
  Country: None (occurrence: None)
  Receive Date: 20050527
  Receipt Date: 20050504
  Transmission Date: 20051028
  Serious: Yes (Other)
  Sender: FDA-Public Use
  Company Number: PHNR2005AU00833

PATIENT
  Sex: Male

DRUGS (4)
  1. LITHIUM [Concomitant]
     Indication: MANIA
     Dosage: 2000 MG, QD
     Route: 048
     Dates: start: 19990101
  2. OLANZAPINE [Concomitant]
     Indication: SCHIZOAFFECTIVE DISORDER
     Dosage: 15 G, UNK
     Dates: start: 20010101
  3. EPILIM [Concomitant]
     Indication: MANIA
     Dosage: 1500 MG, UNK
     Dates: start: 20010101
  4. CLOZARIL [Suspect]
     Dosage: 12.5-350 MG
     Dates: start: 20050218

REACTIONS (3)
  - CARDIOMYOPATHY [None]
  - ECHOCARDIOGRAM [None]
  - TACHYCARDIA [None]
